FAERS Safety Report 25486865 (Version 1)
Quarter: 2025Q2

REPORT INFORMATION
  Report Type: Spontaneous
  Country: DE (occurrence: DE)
  Receive Date: 20250627
  Receipt Date: 20250627
  Transmission Date: 20250717
  Serious: Yes (Other)
  Sender: STRIDES
  Company Number: DE-STRIDES ARCOLAB LIMITED-2025SP007826

PATIENT
  Age: 66 Year
  Sex: Male

DRUGS (3)
  1. CABERGOLINE [Suspect]
     Active Substance: CABERGOLINE
     Indication: Pituitary tumour benign
     Route: 065
  2. CABERGOLINE [Suspect]
     Active Substance: CABERGOLINE
     Route: 065
  3. CABERGOLINE [Suspect]
     Active Substance: CABERGOLINE
     Route: 065

REACTIONS (2)
  - Cerebrospinal fluid leakage [Recovered/Resolved]
  - Cerebrospinal fistula [Recovered/Resolved]
